FAERS Safety Report 18900331 (Version 1)
Quarter: 2021Q1

REPORT INFORMATION
  Report Type: Spontaneous
  Country: US (occurrence: US)
  Receive Date: 20210216
  Receipt Date: 20210216
  Transmission Date: 20210420
  Serious: No
  Sender: FDA-Public Use
  Company Number: US-SA-2021SA052495

PATIENT
  Age: 83 Year
  Sex: Male

DRUGS (1)
  1. DUPIXENT [Suspect]
     Active Substance: DUPILUMAB
     Dosage: DRUG STRUCTURE DOSAGE : 300MG DRUG INTERVAL DOSAGE : EVERY TWO WEEKS
     Route: 058
     Dates: start: 20200508

REACTIONS (2)
  - Dizziness [Unknown]
  - Blood pressure increased [Unknown]
